FAERS Safety Report 8097951-6 (Version None)
Quarter: 2012Q1

REPORT INFORMATION
  Report Type: 
  Country: None (occurrence: None)
  Receive Date: 20120128
  Receipt Date: 20110721
  Transmission Date: 20120608
  Serious: No
  Sender: FDA-Public Use
  Company Number: US-ABBOTT-11P-163-0840949-00

PATIENT
  Age: 63 Year
  Sex: Female

DRUGS (9)
  1. SUPPLEMENTS [Concomitant]
     Indication: SUPPLEMENTATION THERAPY
     Dosage: DAILY
  2. COLESTIPOL HYDROCHLORIDE [Concomitant]
     Indication: DIARRHOEA
  3. WARFARIN SODIUM [Concomitant]
     Indication: PRODUCT USED FOR UNKNOWN INDICATION
     Dosage: 3MG MON-FRI, 2.5MG SAT + SUN
  4. VITAMIN TAB [Concomitant]
     Indication: PRODUCT USED FOR UNKNOWN INDICATION
     Dosage: DAILY
  5. VICODIN [Concomitant]
     Indication: PAIN
     Dosage: 5/500MG AS NEEDED
  6. HUMIRA [Suspect]
     Indication: CROHN'S DISEASE
     Dosage: INTERRUPTED
     Dates: start: 20070101, end: 20090101
  7. HUMIRA [Suspect]
     Dates: start: 20110301
  8. MELATONIN [Concomitant]
     Indication: INSOMNIA
  9. ASACOL [Concomitant]
     Indication: CROHN'S DISEASE

REACTIONS (5)
  - DYSPHAGIA [None]
  - INCREASED TENDENCY TO BRUISE [None]
  - INJECTION SITE HAEMORRHAGE [None]
  - DEVICE MALFUNCTION [None]
  - INJECTION SITE HAEMATOMA [None]
